FAERS Safety Report 11858432 (Version 2)
Quarter: 2015Q4

REPORT INFORMATION
  Report Type: Spontaneous
  Country: JP (occurrence: JP)
  Receive Date: 20151222
  Receipt Date: 20151230
  Transmission Date: 20160305
  Serious: Yes (Death)
  Sender: FDA-Public Use
  Company Number: JP-WATSON-2015-27081

PATIENT
  Age: 80 Year
  Sex: Male

DRUGS (9)
  1. UBRETID [Suspect]
     Active Substance: DISTIGMINE BROMIDE
     Indication: DYSURIA
     Dosage: UNK, UNKNOWN
     Route: 048
     Dates: start: 20150123
  2. UBRETID [Suspect]
     Active Substance: DISTIGMINE BROMIDE
     Indication: BLADDER OUTLET OBSTRUCTION
  3. RAPAFLO [Suspect]
     Active Substance: SILODOSIN
     Indication: BENIGN PROSTATIC HYPERPLASIA
     Dosage: 8 MG, DAILY
     Route: 048
     Dates: start: 20150123, end: 20151104
  4. RAPAFLO [Suspect]
     Active Substance: SILODOSIN
     Indication: BLADDER OUTLET OBSTRUCTION
  5. RAPAFLO [Suspect]
     Active Substance: SILODOSIN
     Indication: DYSURIA
  6. UBRETID [Suspect]
     Active Substance: DISTIGMINE BROMIDE
     Indication: BENIGN PROSTATIC HYPERPLASIA
  7. AVOLVE [Suspect]
     Active Substance: DUTASTERIDE
     Indication: DYSURIA
     Dosage: UNK, UNKNOWN
     Route: 048
     Dates: start: 20150123
  8. AVOLVE [Suspect]
     Active Substance: DUTASTERIDE
     Indication: BLADDER OUTLET OBSTRUCTION
  9. AVOLVE [Suspect]
     Active Substance: DUTASTERIDE
     Indication: BENIGN PROSTATIC HYPERPLASIA

REACTIONS (2)
  - Blood triglycerides increased [Not Recovered/Not Resolved]
  - Cardiac disorder [Fatal]
